FAERS Safety Report 6774978-5 (Version None)
Quarter: 2010Q2

REPORT INFORMATION
  Report Type: 
  Country: None (occurrence: None)
  Receive Date: 20100617
  Receipt Date: 20100607
  Transmission Date: 20101027
  Serious: Yes (Hospitalization)
  Sender: FDA-Public Use
  Company Number: DE-ELI_LILLY_AND_COMPANY-DE201006002026

PATIENT
  Age: 62 Year
  Sex: Female

DRUGS (7)
  1. ZYPREXA [Suspect]
     Indication: DEPRESSION
     Dosage: 2.5 MG, DAILY (1/D)
     Route: 048
     Dates: end: 20100225
  2. ANAFRANIL [Concomitant]
     Dosage: 75 MG, DAILY (1/D)
     Route: 048
     Dates: end: 20100225
  3. LORAZEPAM [Concomitant]
     Dosage: 1.5 MG, DAILY (1/D)
     Route: 048
     Dates: start: 20100224, end: 20100225
  4. SEROQUEL [Concomitant]
     Dosage: 100 MG, DAILY (1/D)
     Route: 048
     Dates: start: 20100126
  5. SEROQUEL [Concomitant]
     Dosage: 25 MG, DAILY (1/D)
     Route: 048
     Dates: start: 20100224, end: 20100224
  6. BISOPROLOL [Concomitant]
     Dosage: 5 MG, DAILY (1/D)
     Route: 048
  7. LEVOTHYROXINE SODIUM [Concomitant]
     Dosage: 25 UG, DAILY (1/D)
     Route: 048

REACTIONS (7)
  - BLOOD PRESSURE INCREASED [None]
  - CEREBRAL ATROPHY [None]
  - CEREBRAL MICROANGIOPATHY [None]
  - DELIRIUM [None]
  - HOSPITALISATION [None]
  - OFF LABEL USE [None]
  - TACHYCARDIA [None]
